FAERS Safety Report 25568037 (Version 1)
Quarter: 2025Q3

REPORT INFORMATION
  Report Type: Spontaneous
  Country: US (occurrence: US)
  Receive Date: 20250716
  Receipt Date: 20250716
  Transmission Date: 20251020
  Serious: Yes (Hospitalization)
  Sender: ELI LILLY AND COMPANY
  Company Number: US-ELI_LILLY_AND_COMPANY-US202507011915

PATIENT
  Age: 85 Year
  Sex: Female

DRUGS (1)
  1. ABEMACICLIB [Suspect]
     Active Substance: ABEMACICLIB
     Indication: Hormone receptor positive HER2 negative breast cancer
     Route: 065

REACTIONS (8)
  - Pulmonary toxicity [Recovering/Resolving]
  - Atrial fibrillation [Unknown]
  - Pneumonia [Recovering/Resolving]
  - Lung opacity [Unknown]
  - Lymphadenopathy [Unknown]
  - Right ventricular systolic pressure increased [Unknown]
  - Blood creatinine increased [Unknown]
  - Pneumonitis [Recovering/Resolving]
